FAERS Safety Report 26139109 (Version 1)
Quarter: 2025Q4

REPORT INFORMATION
  Report Type: Spontaneous
  Country: US (occurrence: US)
  Receive Date: 20251210
  Receipt Date: 20251210
  Transmission Date: 20260118
  Serious: No
  Sender: EDENBRIDGE PHARMACEUTICALS
  Company Number: US-EDENBRIDGE PHARMACEUTICALS, LLC-US-2024EDE000075

PATIENT
  Age: 69 Year
  Sex: Male

DRUGS (2)
  1. IVERMECTIN [Suspect]
     Active Substance: IVERMECTIN
     Indication: Rectal cancer
     Dosage: 3 MG BID
     Route: 048
     Dates: start: 202408, end: 202410
  2. METFORMIN [Concomitant]
     Active Substance: METFORMIN HYDROCHLORIDE
     Indication: Product used for unknown indication
     Route: 065

REACTIONS (1)
  - Product use in unapproved indication [Unknown]

NARRATIVE: CASE EVENT DATE: 20240801
